FAERS Safety Report 6003713-3 (Version None)
Quarter: 2008Q4

REPORT INFORMATION
  Report Type: 
  Country: None (occurrence: None)
  Receive Date: 20081216
  Receipt Date: 20080910
  Transmission Date: 20090506
  Serious: No
  Sender: FDA-Public Use
  Company Number: US-AMGEN-KDL306945

PATIENT
  Sex: Female

DRUGS (7)
  1. NEULASTA [Suspect]
     Indication: CHEMOTHERAPY
  2. ARANESP [Suspect]
     Indication: ANAEMIA OF MALIGNANT DISEASE
  3. ARIMIDEX [Concomitant]
  4. CYTOXAN [Concomitant]
  5. ADRIAMYCIN PFS [Concomitant]
  6. PACLITAXEL [Concomitant]
  7. RADIATION THERAPY [Concomitant]

REACTIONS (20)
  - ALOPECIA [None]
  - BONE PAIN [None]
  - CARDIAC DISORDER [None]
  - CATARACT [None]
  - DIZZINESS [None]
  - DYSPNOEA [None]
  - INJECTION SITE PAIN [None]
  - LYMPHOEDEMA [None]
  - NERVE INJURY [None]
  - NEUROPATHY PERIPHERAL [None]
  - ONYCHOMADESIS [None]
  - OSTEOPOROSIS [None]
  - QUALITY OF LIFE DECREASED [None]
  - RADIATION SKIN INJURY [None]
  - SKIN EXFOLIATION [None]
  - SOMNOLENCE [None]
  - SYNCOPE [None]
  - VOMITING [None]
  - WALKING AID USER [None]
  - WHITE BLOOD CELL COUNT DECREASED [None]
